FAERS Safety Report 7107523-5 (Version None)
Quarter: 2010Q4

REPORT INFORMATION
  Report Type: 
  Country: None (occurrence: None)
  Receive Date: 20101117
  Receipt Date: 20101105
  Transmission Date: 20110411
  Serious: Yes (Hospitalization, Other)
  Sender: FDA-Public Use
  Company Number: IT-JNJFOC-20101103007

PATIENT
  Sex: Male

DRUGS (2)
  1. RISPERDAL [Suspect]
     Indication: ILL-DEFINED DISORDER
     Dosage: DURATION: FOR THREE YEARS
     Route: 065
  2. RISPERDAL [Suspect]
     Dosage: DURATION: 1 YEAR AND 9 MONTHS
     Route: 065

REACTIONS (3)
  - BONE DECALCIFICATION [None]
  - HOSPITALISATION [None]
  - TOOTH DECALCIFICATION [None]
